FAERS Safety Report 4418034-X (Version None)
Quarter: 2004Q3

REPORT INFORMATION
  Report Type: 
  Country: None (occurrence: None)
  Receive Date: 20040803
  Receipt Date: 20040723
  Transmission Date: 20050211
  Serious: Yes (Hospitalization)
  Sender: FDA-Public Use
  Company Number: AWBNIASPAND2004-3

PATIENT
  Age: 49 Year
  Sex: Male

DRUGS (3)
  1. NIASPAN [Suspect]
     Indication: DYSLIPIDAEMIA
     Dosage: 1000 MG QD PO
     Route: 048
     Dates: start: 20040701, end: 20040717
  2. ALLOPURINOL [Concomitant]
  3. ATORVASTATIN [Concomitant]

REACTIONS (2)
  - DERMATITIS ALLERGIC [None]
  - DYSPNOEA [None]
